FAERS Safety Report 6285523-5 (Version None)
Quarter: 2009Q3

REPORT INFORMATION
  Report Type: 
  Country: None (occurrence: None)
  Receive Date: 20090727
  Receipt Date: 20090723
  Transmission Date: 20100115
  Serious: Yes (Death, Other)
  Sender: FDA-Public Use
  Company Number: PHHO2009GB09254

PATIENT
  Sex: Female

DRUGS (1)
  1. CERTICAN [Suspect]
     Indication: METASTATIC NEOPLASM

REACTIONS (4)
  - DRY SKIN [None]
  - OEDEMA PERIPHERAL [None]
  - SEPSIS [None]
  - SYSTEMIC LEAKAGE [None]
